FAERS Safety Report 24992273 (Version 1)
Quarter: 2025Q1

REPORT INFORMATION
  Report Type: Report from Study
  Country: FR (occurrence: FR)
  Receive Date: 20250220
  Receipt Date: 20250220
  Transmission Date: 20250409
  Serious: Yes (Other)
  Sender: SANOFI AVENTIS
  Company Number: FR-DialogSolutions-SAAVPROD-PI741801-C3

PATIENT
  Age: 55 Year
  Sex: Female

DRUGS (3)
  1. IRBESARTAN [Suspect]
     Active Substance: IRBESARTAN
     Dosage: 150 MG, QD
  2. IRBESARTAN [Suspect]
     Active Substance: IRBESARTAN
     Dosage: 300 MG, QD, TITRATED
  3. CELIPROLOL [Concomitant]
     Active Substance: CELIPROLOL
     Indication: Ehlers-Danlos syndrome

REACTIONS (2)
  - Renal artery thrombosis [Unknown]
  - Renal artery dissection [Unknown]
